FAERS Safety Report 6393251-0 (Version None)
Quarter: 2009Q4

REPORT INFORMATION
  Report Type: 
  Country: None (occurrence: None)
  Receive Date: 20091008
  Receipt Date: 20090926
  Transmission Date: 20100525
  Serious: Yes (Other)
  Sender: FDA-Public Use
  Company Number: US-JNJFOC-20091001387

PATIENT
  Sex: Male
  Weight: 10.89 kg

DRUGS (3)
  1. TYLENOL (CAPLET) [Suspect]
  2. TYLENOL (CAPLET) [Suspect]
     Indication: TEETHING
  3. CHILDREN'S MOTRIN BUBBLE GUM ORAL [Concomitant]
     Indication: PYREXIA

REACTIONS (3)
  - CROUP INFECTIOUS [None]
  - RHINORRHOEA [None]
  - TRANSMISSION OF AN INFECTIOUS AGENT VIA A MEDICINAL PRODUCT [None]
